FAERS Safety Report 26184753 (Version 1)
Quarter: 2025Q4

REPORT INFORMATION
  Report Type: Report from Study
  Country: CA (occurrence: CA)
  Receive Date: 20251222
  Receipt Date: 20251222
  Transmission Date: 20260117
  Serious: Yes (Other)
  Sender: AMARIN PHARMA, INC.
  Company Number: CA-Amarin Pharma  Inc-2025AMR000762

PATIENT
  Age: 73 Year
  Sex: Male

DRUGS (1)
  1. VASCEPA [Suspect]
     Active Substance: ICOSAPENT ETHYL
     Indication: Cerebrovascular accident prophylaxis
     Dates: start: 20251125

REACTIONS (2)
  - Aortic stenosis [Unknown]
  - Blood triglycerides increased [Unknown]
